FAERS Safety Report 7822343-1 (Version None)
Quarter: 2011Q4

REPORT INFORMATION
  Report Type: 
  Country: None (occurrence: None)
  Receive Date: 20111018
  Receipt Date: 20101130
  Transmission Date: 20120403
  Serious: No
  Sender: FDA-Public Use
  Company Number: US-ASTRAZENECA-2010SE56611

PATIENT
  Age: 49 Year
  Sex: Female
  Weight: 53.5 kg

DRUGS (3)
  1. SYMBICORT [Suspect]
     Indication: ASTHMA
     Dosage: 320 MCG BID
     Route: 055
     Dates: start: 20100701
  2. SINGULAIR [Concomitant]
  3. ALBUTEROL [Concomitant]
     Dosage: AS REQUIRED

REACTIONS (3)
  - CHEST DISCOMFORT [None]
  - WHEEZING [None]
  - DRUG DOSE OMISSION [None]
